FAERS Safety Report 7345794-0 (Version None)
Quarter: 2011Q1

REPORT INFORMATION
  Report Type: 
  Country: None (occurrence: None)
  Receive Date: 20110311
  Receipt Date: 20110304
  Transmission Date: 20110831
  Serious: Yes (Hospitalization)
  Sender: FDA-Public Use
  Company Number: JP-BIOGENIDEC-2009BI014525

PATIENT
  Age: 33 Year
  Sex: Female

DRUGS (14)
  1. AVONEX [Suspect]
     Route: 030
     Dates: start: 20090807, end: 20100201
  2. ACTIT [Concomitant]
     Dates: start: 20090512, end: 20090516
  3. AVONEX [Suspect]
     Indication: RELAPSING-REMITTING MULTIPLE SCLEROSIS
     Route: 030
     Dates: start: 20090204, end: 20090701
  4. MUCOSTA [Concomitant]
     Dates: start: 20090513
  5. AVONEX [Suspect]
     Route: 030
     Dates: start: 20100201
  6. LENDORMIN [Concomitant]
     Indication: PRODUCT USED FOR UNKNOWN INDICATION
     Dates: start: 20090218
  7. MYONAL [Concomitant]
     Indication: PRODUCT USED FOR UNKNOWN INDICATION
     Dates: start: 20090520
  8. ALLELOCK [Concomitant]
     Dates: start: 20090731
  9. ROHYPNOL [Concomitant]
     Indication: PRODUCT USED FOR UNKNOWN INDICATION
  10. VOLTAREN [Concomitant]
     Indication: PRODUCT USED FOR UNKNOWN INDICATION
     Dates: start: 20090213
  11. NAIXAN [Concomitant]
     Dates: start: 20090513
  12. DEPAS [Concomitant]
     Indication: PRODUCT USED FOR UNKNOWN INDICATION
  13. SENNOSIDE [Concomitant]
     Dates: start: 20090514
  14. FERRUM [Concomitant]
     Indication: PRODUCT USED FOR UNKNOWN INDICATION
     Dates: start: 20090424

REACTIONS (4)
  - BLOOD POTASSIUM DECREASED [None]
  - PALPITATIONS [None]
  - DIZZINESS POSTURAL [None]
  - MULTIPLE SCLEROSIS RELAPSE [None]
